FAERS Safety Report 13121236 (Version 1)
Quarter: 2017Q1

REPORT INFORMATION
  Report Type: Spontaneous
  Country: US (occurrence: US)
  Receive Date: 20170117
  Receipt Date: 20170117
  Transmission Date: 20170428
  Serious: Yes (Other)
  Sender: FDA-Public Use
  Company Number: US-PFIZER INC-2016575374

PATIENT
  Age: 60 Year
  Sex: Female
  Weight: 95.24 kg

DRUGS (22)
  1. DOLOBID [Concomitant]
     Active Substance: DIFLUNISAL
     Dosage: 500 MG, 2X/DAY
     Route: 048
  2. EPIPEN [Concomitant]
     Active Substance: EPINEPHRINE
     Dosage: 0.3 ML, AS NEEDED (EPIPENJR 2-PAK)0.15 MG/0.3 ML(1:2000)PNLJ AUTO-INJECTOR)(INTO MUSCLE ONCE)(1DOSE)
     Route: 030
     Dates: start: 20130623
  3. OXYCODONE [Concomitant]
     Active Substance: OXYCODONE
     Indication: PAIN
     Dosage: 10 MG, AS NEEDED(EVERY 4 TO 6 HOURS AS NEEDED FOR PAIN MAX 6 PER DAY)
     Dates: start: 20160511
  4. LYRICA [Suspect]
     Active Substance: PREGABALIN
     Indication: FIBROMYALGIA
     Dosage: 150 MG, 2X/DAY (75 MG CAPSULE, TAKE 2 CAPSULES 2X/DAY)
     Route: 048
     Dates: start: 20160627
  5. VENTOLIN HFA [Concomitant]
     Active Substance: ALBUTEROL SULFATE
     Indication: WHEEZING
     Dosage: 90 UG, UNK (INHALE 1-2 PUFFS AS DIRECTED EVERY SIX HOURS)
     Route: 045
     Dates: start: 20160722
  6. CALCIUM + VITAMIN D3 [Concomitant]
     Active Substance: CALCIUM CARBONATE\CHOLECALCIFEROL
     Dosage: 600 MG, DAILY
     Route: 048
     Dates: start: 20110614
  7. CYMBALTA [Concomitant]
     Active Substance: DULOXETINE HYDROCHLORIDE
     Dosage: 60 MG, 2X/DAY
     Route: 048
     Dates: start: 20160421
  8. LEVOXYL [Concomitant]
     Active Substance: LEVOTHYROXINE SODIUM
     Dosage: 150 UG, DAILY
     Route: 048
     Dates: start: 20161130
  9. AMITIZA [Concomitant]
     Active Substance: LUBIPROSTONE
     Dosage: 8 UG, 2X/DAY (TAKE 8 MCG BY MOUTH 2 (TWO) TIMES)
     Route: 048
  10. PSYLLIUM /01328801/ [Suspect]
     Active Substance: PLANTAGO SEED
  11. PROVENTIL HFA [Concomitant]
     Active Substance: ALBUTEROL SULFATE
     Indication: WHEEZING
     Dosage: 90 UNK, AS NEEDED (INHALE 1-2 PUFFS AS DIRECTED EVERY SIX HOURS)
     Route: 045
     Dates: start: 20160722
  12. COMBIVENT [Concomitant]
     Active Substance: ALBUTEROL SULFATE\IPRATROPIUM BROMIDE
     Dosage: UNK,AS NEEDED(IPRATROPIUM:18,SALBUTAMOL SULFATE:103MCG)(ACTUATION INHALER:INHALE2PUFFSASDIREVE 6HR)
     Route: 045
     Dates: start: 20131223
  13. TYLENOL [Concomitant]
     Active Substance: ACETAMINOPHEN
     Indication: PAIN
     Dosage: 1000 MG, AS NEEDED (EVERY SIX HOURS)
     Route: 048
  14. LYRICA [Suspect]
     Active Substance: PREGABALIN
     Dosage: 150 MG, 2X/DAY (ONE IN THE MORNING AND ONE AT 4 O^CLOCK)
     Dates: start: 201611
  15. ASPIRIN. [Concomitant]
     Active Substance: ASPIRIN
     Dosage: 81 MG, DAILY
     Route: 048
  16. METAMUCIL [Concomitant]
     Active Substance: PLANTAGO SEED
     Dosage: UNK (ONE TABLESPOON IN WATER )
     Dates: start: 20150810
  17. DESYREL [Concomitant]
     Active Substance: TRAZODONE HYDROCHLORIDE
     Dosage: 50 MG, 1X/DAY (BEDTIME DAILY)
     Route: 048
     Dates: start: 20160426
  18. QUESTRAN [Concomitant]
     Active Substance: CHOLESTYRAMINE
     Dosage: 4 G, 2X/DAY (POWDER)
     Route: 048
     Dates: start: 20160314
  19. PROAIR HFA [Concomitant]
     Active Substance: ALBUTEROL SULFATE
     Indication: WHEEZING
     Dosage: 90 UG, AS NEEDED(INHALE 1-2 PUFFS AS DIRECTED EVERY SIX HOURS)
     Route: 045
  20. BENTYL [Concomitant]
     Active Substance: DICYCLOMINE HYDROCHLORIDE
     Indication: MUSCLE SPASMS
     Dosage: 20 MG, AS NEEDED (4 TIMES DAILY)
     Route: 048
     Dates: start: 20161130
  21. SYNTHROID [Concomitant]
     Active Substance: LEVOTHYROXINE SODIUM
     Dosage: 150 UG, DAILY
     Route: 048
     Dates: start: 20161130
  22. PRILOSEC [Concomitant]
     Active Substance: OMEPRAZOLE MAGNESIUM
     Dosage: 20 MG, 2X/DAY
     Route: 048
     Dates: start: 20161003

REACTIONS (4)
  - Asthenia [Not Recovered/Not Resolved]
  - Musculoskeletal pain [Not Recovered/Not Resolved]
  - Condition aggravated [Not Recovered/Not Resolved]
  - Suicide attempt [Unknown]

NARRATIVE: CASE EVENT DATE: 20170103
